FAERS Safety Report 10052457 (Version 1)
Quarter: 2014Q2

REPORT INFORMATION
  Report Type: Spontaneous
  Country: JP (occurrence: JP)
  Receive Date: 20140402
  Receipt Date: 20140402
  Transmission Date: 20141212
  Serious: Yes (Death)
  Sender: FDA-Public Use
  Company Number: JP-ELI_LILLY_AND_COMPANY-JP201403010137

PATIENT
  Age: 55 Year
  Sex: Male

DRUGS (8)
  1. ZYPREXA [Suspect]
     Indication: SCHIZOPHRENIA
     Dosage: UNK
     Route: 048
  2. XEPLION                            /05724802/ [Suspect]
     Indication: SCHIZOPHRENIA
     Dosage: 50 MG, UNK
     Route: 030
  3. PROMETHAZINE HYDROCHLORIDE [Suspect]
     Indication: PRODUCT USED FOR UNKNOWN INDICATION
     Dosage: UNK
     Route: 065
  4. HALOPERIDOL DECANOATE [Concomitant]
     Dosage: 50 MG, UNK
  5. SITAGLIPTIN PHOSPHATE MONOHYDRATE [Concomitant]
     Dosage: UNK
  6. THEOPHYLLINE [Concomitant]
     Dosage: UNK
  7. LITHIUM CARBONATE [Concomitant]
     Dosage: UNK
  8. BIPERIDEN HYDROCHLORIDE [Concomitant]

REACTIONS (5)
  - Death [Fatal]
  - Hyperglycaemia [Unknown]
  - Hallucination, auditory [Unknown]
  - Hallucination [Unknown]
  - Incontinence [Unknown]
